FAERS Safety Report 6784042-7 (Version None)
Quarter: 2010Q2

REPORT INFORMATION
  Report Type: 
  Country: None (occurrence: None)
  Receive Date: 20100622
  Receipt Date: 20100608
  Transmission Date: 20101027
  Serious: Yes (Hospitalization)
  Sender: FDA-Public Use
  Company Number: US-ELI_LILLY_AND_COMPANY-US201006004064

PATIENT
  Sex: Female

DRUGS (3)
  1. FORTEO [Suspect]
     Indication: OSTEOPOROSIS
     Dosage: 20 UG, DAILY (1/D)
  2. LEVOTHYROXINE SODIUM [Concomitant]
     Dosage: 88 UG, UNKNOWN
  3. LISINOPRIL [Concomitant]
     Indication: BLOOD PRESSURE
     Dosage: 5 MG, UNKNOWN

REACTIONS (5)
  - ARTHRALGIA [None]
  - BURNING SENSATION [None]
  - DEHYDRATION [None]
  - GOUT [None]
  - THYROID DISORDER [None]
